FAERS Safety Report 8290476-4 (Version None)
Quarter: 2012Q2

REPORT INFORMATION
  Report Type: 
  Country: None (occurrence: None)
  Receive Date: 20120417
  Receipt Date: 20110428
  Transmission Date: 20120825
  Serious: No
  Sender: FDA-Public Use
  Company Number: IE-ASTRAZENECA-2011SE24560

PATIENT
  Age: 54 Year
  Sex: Female
  Weight: 78 kg

DRUGS (12)
  1. DIAZEPAM [Suspect]
  2. PROAIR HFA [Suspect]
  3. PERCOCET [Suspect]
  4. CARISOPRODOL [Suspect]
  5. NEXIUM [Suspect]
     Indication: ABDOMINAL DISCOMFORT
     Route: 048
     Dates: start: 20100101
  6. FENTANYL-100 [Suspect]
  7. NAPROXEN [Suspect]
  8. CALCIUM CARBONATE [Suspect]
  9. ALBUTEROL SULFATE [Suspect]
  10. ZOLOFT [Suspect]
  11. MULTI-VITAMINS [Suspect]
  12. IPRATROPIUM BROMIDE [Suspect]

REACTIONS (4)
  - PYREXIA [None]
  - ABDOMINAL DISCOMFORT [None]
  - PHARYNGITIS STREPTOCOCCAL [None]
  - HYPERHIDROSIS [None]
